FAERS Safety Report 4518386-6 (Version None)
Quarter: 2004Q4

REPORT INFORMATION
  Report Type: 
  Country: None (occurrence: None)
  Receive Date: 20041029
  Receipt Date: 20040824
  Transmission Date: 20050328
  Serious: Yes (Hospitalization)
  Sender: FDA-Public Use
  Company Number: 200416414US

PATIENT

DRUGS (3)
  1. KETEK [Suspect]
     Indication: PHARYNGITIS
  2. KETEK [Suspect]
     Indication: TONSILLITIS
  3. ANTIBIOTIC [Concomitant]

REACTIONS (1)
  - ANAPHYLACTIC SHOCK [None]
